FAERS Safety Report 7197580-2 (Version None)
Quarter: 2010Q4

REPORT INFORMATION
  Report Type: 
  Country: None (occurrence: None)
  Receive Date: 20101227
  Receipt Date: 20101221
  Transmission Date: 20110411
  Serious: Yes (Death, Other)
  Sender: FDA-Public Use
  Company Number: JP-JNJFOC-20101207556

PATIENT
  Age: 58 Year
  Sex: Female
  Weight: 46 kg

DRUGS (26)
  1. DOXORUBICIN HCL [Suspect]
     Indication: OVARIAN CANCER RECURRENT
     Dosage: COURSE 1
     Route: 042
  2. DOXORUBICIN HCL [Suspect]
     Dosage: COURSE 3
     Route: 042
  3. DOXORUBICIN HCL [Suspect]
     Dosage: COURSE 2
     Route: 042
  4. BETAMETHASONE [Concomitant]
     Indication: OVARIAN CANCER RECURRENT
     Route: 048
  5. BETAMETHASONE [Concomitant]
     Route: 048
  6. BETAMETHASONE [Concomitant]
     Route: 048
  7. ZYLORIC [Concomitant]
     Indication: PROPHYLAXIS
     Route: 049
  8. MAGLAX [Concomitant]
     Indication: CONSTIPATION
     Route: 048
  9. PRIMPERAN TAB [Concomitant]
     Indication: CONSTIPATION
     Route: 048
  10. ALOSENN [Concomitant]
     Indication: CONSTIPATION
     Route: 048
  11. CONCENTRATED HUMAN RED BLOOD CELLS [Concomitant]
     Indication: OVARIAN CANCER RECURRENT
     Route: 041
  12. CONCENTRATED HUMAN RED BLOOD CELLS [Concomitant]
     Route: 041
  13. MUCOSTA [Concomitant]
     Indication: GASTRITIS
     Route: 048
  14. PLATELETS [Concomitant]
     Indication: OVARIAN CANCER RECURRENT
     Route: 041
  15. FRESH FROZEN PLASMA [Concomitant]
     Indication: OVARIAN CANCER RECURRENT
     Route: 042
  16. LASIX [Concomitant]
     Indication: OVARIAN CANCER RECURRENT
     Route: 042
  17. INOVAN [Concomitant]
     Indication: OVARIAN CANCER RECURRENT
     Route: 042
  18. NEUTROGIN [Concomitant]
     Indication: NEUTROPHIL COUNT DECREASED
     Route: 065
  19. DOBUTAMINE HYDROCHLORIDE [Concomitant]
     Indication: OVARIAN CANCER RECURRENT
     Route: 042
  20. HERBESSER [Concomitant]
     Indication: OVARIAN CANCER RECURRENT
     Route: 042
  21. REMINARON [Concomitant]
     Indication: OVARIAN CANCER RECURRENT
     Route: 042
  22. OMEPRAL [Concomitant]
     Route: 042
  23. ANTHROBIN P [Concomitant]
     Indication: OVARIAN CANCER RECURRENT
     Route: 042
  24. BUMINATE [Concomitant]
     Indication: OVARIAN CANCER RECURRENT
     Route: 042
  25. HANP [Concomitant]
     Indication: OVARIAN CANCER RECURRENT
     Route: 042
  26. GASTER [Concomitant]
     Route: 042

REACTIONS (7)
  - ANAEMIA [None]
  - CARDIAC FAILURE [None]
  - DISSEMINATED INTRAVASCULAR COAGULATION [None]
  - HEPATIC FUNCTION ABNORMAL [None]
  - NEUTROPHIL COUNT DECREASED [None]
  - OVARIAN CANCER [None]
  - RENAL FAILURE [None]
